FAERS Safety Report 5150433-3 (Version None)
Quarter: 2006Q4

REPORT INFORMATION
  Report Type: 
  Country: None (occurrence: None)
  Receive Date: 20061114
  Receipt Date: 20061102
  Transmission Date: 20070319
  Serious: Yes (Hospitalization)
  Sender: FDA-Public Use
  Company Number: GB-ROCHE-469737

PATIENT
  Age: 77 Year
  Sex: Female
  Weight: 48 kg

DRUGS (2)
  1. CAPECITABINE [Suspect]
     Indication: COLON CANCER
     Dosage: ADMINISTERED ON DAYS 1-14 OF A 3 WEEK CYCLE.
     Route: 048
     Dates: start: 20060918
  2. RAMIPRIL [Concomitant]
     Indication: HYPERTENSION
     Route: 048
     Dates: start: 20020615

REACTIONS (2)
  - ELECTROLYTE IMBALANCE [None]
  - HIATUS HERNIA [None]
